FAERS Safety Report 5664493-4 (Version None)
Quarter: 2008Q1

REPORT INFORMATION
  Report Type: 
  Country: None (occurrence: None)
  Receive Date: 20080314
  Receipt Date: 20080313
  Transmission Date: 20080703
  Serious: Yes (Hospitalization)
  Sender: FDA-Public Use
  Company Number: B0508699A

PATIENT
  Age: 10 Year
  Sex: Male
  Weight: 31 kg

DRUGS (3)
  1. RELENZA [Suspect]
     Indication: INFLUENZA
     Dosage: 10MG TWICE PER DAY
     Route: 055
     Dates: start: 20080208, end: 20080209
  2. CALONAL [Concomitant]
     Indication: INFLUENZA
     Dosage: 200MG AS REQUIRED
     Route: 048
     Dates: start: 20080208, end: 20080208
  3. ANHIBA [Concomitant]
     Dosage: 100MG UNKNOWN
     Route: 054
     Dates: start: 20080209, end: 20080209

REACTIONS (9)
  - ABNORMAL BEHAVIOUR [None]
  - COGNITIVE DISORDER [None]
  - DEPRESSED LEVEL OF CONSCIOUSNESS [None]
  - HALLUCINATION [None]
  - HYPERTHERMIA [None]
  - INITIAL INSOMNIA [None]
  - MEMORY IMPAIRMENT [None]
  - PSYCHIATRIC SYMPTOM [None]
  - SEDATION [None]
